FAERS Safety Report 7032425-2 (Version None)
Quarter: 2010Q4

REPORT INFORMATION
  Report Type: 
  Country: None (occurrence: None)
  Receive Date: 20101007
  Receipt Date: 20101005
  Transmission Date: 20110411
  Serious: Yes (Hospitalization)
  Sender: FDA-Public Use
  Company Number: DE-WYE-G06769510

PATIENT
  Age: 86 Year
  Sex: Female

DRUGS (8)
  1. TAZOBAC EF [Suspect]
     Indication: UROSEPSIS
     Route: 042
     Dates: start: 20100724, end: 20100731
  2. METHIMAZOLE [Concomitant]
     Indication: TOXIC NODULAR GOITRE
     Route: 048
     Dates: start: 20060101
  3. PANTOPRAZOLE SODIUM [Suspect]
     Indication: GASTROOESOPHAGEAL REFLUX DISEASE
     Route: 048
     Dates: start: 20090101
  4. LERCANIDIPINE [Concomitant]
     Indication: HYPERTENSION
     Route: 048
     Dates: start: 20060101
  5. SPIRONOLACTONE [Concomitant]
     Indication: OEDEMA
     Route: 048
     Dates: start: 20080101
  6. TOREM [Concomitant]
     Indication: OEDEMA PERIPHERAL
     Route: 048
     Dates: start: 20060101
  7. ROCEPHIN [Suspect]
     Indication: UROSEPSIS
     Route: 042
     Dates: start: 20100719, end: 20100723
  8. RAMIPRIL [Concomitant]
     Indication: HYPERTENSION
     Route: 048
     Dates: start: 20050101

REACTIONS (2)
  - CLOSTRIDIUM DIFFICILE COLITIS [None]
  - DEHYDRATION [None]
